FAERS Safety Report 19715766 (Version 1)
Quarter: 2021Q3

REPORT INFORMATION
  Report Type: Report from Study
  Country: BR (occurrence: BR)
  Receive Date: 20210818
  Receipt Date: 20210818
  Transmission Date: 20211014
  Serious: Yes (Other)
  Sender: FDA-Public Use
  Company Number: NVSC2021BR180473

PATIENT
  Sex: Female

DRUGS (2)
  1. TAFINLAR [Suspect]
     Active Substance: DABRAFENIB MESYLATE
     Indication: MALIGNANT MELANOMA
     Dosage: UNK
     Route: 065
     Dates: start: 202104
  2. MEKINIST [Suspect]
     Active Substance: TRAMETINIB DIMETHYL SULFOXIDE
     Indication: MALIGNANT MELANOMA
     Dosage: UNK
     Route: 065
     Dates: start: 202104

REACTIONS (11)
  - Condition aggravated [Unknown]
  - Head injury [Unknown]
  - Disturbance in attention [Not Recovered/Not Resolved]
  - Oedema peripheral [Unknown]
  - Limb discomfort [Not Recovered/Not Resolved]
  - Apathy [Not Recovered/Not Resolved]
  - Seizure [Not Recovered/Not Resolved]
  - Brain injury [Unknown]
  - Speech disorder [Not Recovered/Not Resolved]
  - Loss of consciousness [Not Recovered/Not Resolved]
  - Injury [Unknown]
